FAERS Safety Report 5267570-5 (Version None)
Quarter: 2007Q1

REPORT INFORMATION
  Report Type: 
  Country: None (occurrence: None)
  Receive Date: 20070316
  Receipt Date: 20070315
  Transmission Date: 20070707
  Serious: Yes (Death, Hospitalization)
  Sender: FDA-Public Use
  Company Number: JP-BAXTER-2006BH014579

PATIENT
  Age: 48 Year
  Sex: Female
  Weight: 66 kg

DRUGS (5)
  1. DIANEAL [Suspect]
     Indication: RENAL FAILURE CHRONIC
     Route: 033
     Dates: start: 20010509, end: 20011204
  2. DIANEAL [Suspect]
     Route: 033
     Dates: start: 20010524, end: 20011101
  3. DIANEAL [Suspect]
     Route: 033
     Dates: start: 20020205, end: 20020903
  4. DIANEAL [Suspect]
     Route: 033
     Dates: start: 20020904, end: 20041124
  5. EXTRANEAL [Suspect]
     Indication: RENAL FAILURE CHRONIC
     Route: 033
     Dates: start: 20020904, end: 20041124

REACTIONS (6)
  - DIARRHOEA [None]
  - ILEUS PARALYTIC [None]
  - INTESTINAL MASS [None]
  - PERITONITIS BACTERIAL [None]
  - PYREXIA [None]
  - SCLEROSING ENCAPSULATING PERITONITIS [None]
